FAERS Safety Report 4707323-7 (Version None)
Quarter: 2005Q3

REPORT INFORMATION
  Report Type: 
  Country: None (occurrence: None)
  Receive Date: 20050701
  Receipt Date: 20050701
  Transmission Date: 20060218
  Serious: Yes (Hospitalization, Other)
  Sender: FDA-Public Use
  Company Number: None

PATIENT
  Sex: Male
  Weight: 75 kg

DRUGS (5)
  1. CISPLATIN [Suspect]
     Indication: NON-SMALL CELL LUNG CANCER
     Dosage: 75 MG/M2 IV OVER 60 MIN ON DAYS 1,22,50 + 71
     Route: 042
     Dates: start: 20050414
  2. NAVELBINE [Suspect]
     Indication: NON-SMALL CELL LUNG CANCER
     Dosage: 30 MG/M2 IVP ON DAYS 1,8,22, 29 ; 15 MG /M2 IVP ON DAYS 50, 57,71, 78
     Route: 042
     Dates: start: 20050414
  3. AE-941 [Suspect]
     Indication: NON-SMALL CELL LUNG CANCER
     Dosage: 120 ML PO BID APROX.  12 HR APART, STARTING ON DAY 1 TO CONT.  AT LEAST TO RADIOTHERAPY IS COMPLETED
     Route: 048
     Dates: start: 20050414
  4. PLACEBO [Suspect]
     Indication: NON-SMALL CELL LUNG CANCER
     Dosage: 120 ML PO BID APROX.  12 HR APART, STARTING ON DAY 1 TO CONT.  AT LEAST TO RADIOTHERAPY IS COMPLETED
     Route: 048
     Dates: start: 20050414
  5. RADIOTHERAPY [Suspect]
     Indication: NON-SMALL CELL LUNG CANCER
     Dosage: 2 GY FRACTION QD ON DAYS 1-5 QW FOR 6 WEEKS, STARTING ON DAY 50 (PLANNED TOTAL DOSE 60 GY)
     Dates: start: 20050414

REACTIONS (6)
  - ANOREXIA [None]
  - ATRIAL FIBRILLATION [None]
  - BRONCHIAL CARCINOMA [None]
  - DEPRESSION [None]
  - FATIGUE [None]
  - FEBRILE NEUTROPENIA [None]
